FAERS Safety Report 4925247-7 (Version None)
Quarter: 2006Q1

REPORT INFORMATION
  Report Type: 
  Country: None (occurrence: None)
  Receive Date: 20060222
  Receipt Date: 20060222
  Transmission Date: 20060701
  Serious: No
  Sender: FDA-Public Use
  Company Number: None

PATIENT
  Age: 49 Year
  Sex: Male

DRUGS (22)
  1. ALEMTUZUMAB [Suspect]
  2. MYCOPHENOLATE [Concomitant]
  3. PREDNISONE [Concomitant]
  4. TACROLIMUS [Concomitant]
  5. TRIMETHOPRIM + SULFAMETHOXAZOLE [Concomitant]
  6. VALGANCICLOVIR [Concomitant]
  7. CLOTRIMAZOLE [Concomitant]
  8. CALCIUM GLUCONATE [Concomitant]
  9. DOCUSATE [Concomitant]
  10. PANTOPRAZOLE [Concomitant]
  11. CLOPIDROGREL [Concomitant]
  12. ZOLIPIDEM [Concomitant]
  13. ERGOCALCIFEROL [Concomitant]
  14. CLONIDINE [Concomitant]
  15. METOPROLOL [Concomitant]
  16. ATORVASTATIN CALCIUM [Concomitant]
  17. NIFEDIPINE [Concomitant]
  18. NPH INSULIN [Concomitant]
  19. INSULIN ASPARTATE [Concomitant]
  20. DARBEPOETIN [Concomitant]
  21. MINOXIDIL [Concomitant]
  22. THYMOGLOBULIN [Concomitant]

REACTIONS (7)
  - DISSEMINATED INTRAVASCULAR COAGULATION [None]
  - HEPATIC NECROSIS [None]
  - HISTOPLASMOSIS DISSEMINATED [None]
  - MULTI-ORGAN FAILURE [None]
  - PANCYTOPENIA [None]
  - RESPIRATORY FAILURE [None]
  - SYSTEMIC INFLAMMATORY RESPONSE SYNDROME [None]
